FAERS Safety Report 18408449 (Version 2)
Quarter: 2021Q1

REPORT INFORMATION
  Report Type: Report from Study
  Country: US (occurrence: US)
  Receive Date: 20201021
  Receipt Date: 20210119
  Transmission Date: 20210419
  Serious: Yes (Hospitalization)
  Sender: FDA-Public Use
  Company Number: US-BAUSCH-BL-2020-030253

PATIENT
  Age: 55 Year
  Sex: Female

DRUGS (2)
  1. XIFAXAN [Suspect]
     Active Substance: RIFAXIMIN
     Indication: HEPATIC ENCEPHALOPATHY
     Dosage: STARTED: APPROXIMATELY 8 YEARS AGO
     Route: 048
  2. XIFAXAN [Suspect]
     Active Substance: RIFAXIMIN
     Indication: HEPATIC CIRRHOSIS

REACTIONS (8)
  - Hospitalisation [Recovered/Resolved]
  - Peripheral swelling [Unknown]
  - Product dose omission issue [Unknown]
  - Ill-defined disorder [Unknown]
  - Chest pain [Unknown]
  - Ammonia increased [Unknown]
  - Confusional state [Unknown]
  - Vein disorder [Unknown]

NARRATIVE: CASE EVENT DATE: 202008
